FAERS Safety Report 6558581-8 (Version None)
Quarter: 2010Q1

REPORT INFORMATION
  Report Type: 
  Country: None (occurrence: None)
  Receive Date: 20100126
  Receipt Date: 20100113
  Transmission Date: 20100710
  Serious: Yes (Death)
  Sender: FDA-Public Use
  Company Number: 2010AP000092

PATIENT
  Age: 45 Year
  Sex: Male

DRUGS (6)
  1. CYCLOSPORINE [Suspect]
     Indication: IMMUNOSUPPRESSION
  2. PREDNISONE [Suspect]
     Indication: IMMUNOSUPPRESSION
  3. TACROLIMUS [Suspect]
     Indication: IMMUNOSUPPRESSION
  4. SIROLIMUS [Suspect]
     Indication: IMMUNOSUPPRESSION
  5. DACLIZUAMB [Suspect]
     Indication: IMMUNOSUPPRESSION
  6. IMATINIB [Suspect]
     Indication: IMMUNOSUPPRESSION

REACTIONS (5)
  - CHRONIC MYELOID LEUKAEMIA [None]
  - DISEASE RECURRENCE [None]
  - HEPATIC CIRRHOSIS [None]
  - HEPATITIS B [None]
  - SEPSIS [None]
